FAERS Safety Report 19934705 (Version 3)
Quarter: 2021Q4

REPORT INFORMATION
  Report Type: Spontaneous
  Country: ES (occurrence: ES)
  Receive Date: 20211009
  Receipt Date: 20211021
  Transmission Date: 20220303
  Serious: Yes (Death, Other)
  Sender: FDA-Public Use
  Company Number: ES-SA-2021SA332548

PATIENT

DRUGS (1)
  1. LIBTAYO [Suspect]
     Active Substance: CEMIPLIMAB-RWLC
     Indication: Product used for unknown indication
     Dosage: UNK
     Route: 065
     Dates: end: 202107

REACTIONS (10)
  - General physical health deterioration [Fatal]
  - Secondary adrenocortical insufficiency [Fatal]
  - Secondary hypogonadism [Fatal]
  - Blood corticotrophin increased [Fatal]
  - Blood testosterone increased [Fatal]
  - Blood prolactin increased [Fatal]
  - Hypophysitis [Fatal]
  - Rheumatic disorder [Unknown]
  - Antinuclear antibody positive [Unknown]
  - Adrenal insufficiency [Unknown]
